FAERS Safety Report 5671556-6 (Version None)
Quarter: 2008Q1

REPORT INFORMATION
  Report Type: 
  Country: None (occurrence: None)
  Receive Date: 20080313
  Receipt Date: 20080226
  Transmission Date: 20080703
  Serious: Yes (Hospitalization)
  Sender: FDA-Public Use
  Company Number: 2006JP000083

PATIENT
  Age: 68 Year
  Sex: Female
  Weight: 44.5 kg

DRUGS (14)
  1. TACROLIMUS [Suspect]
     Indication: RHEUMATOID ARTHRITIS
     Dosage: 3 MG, UID/QD, ORAL
     Route: 048
     Dates: start: 20051209, end: 20060602
  2. PREDNISOLONE TAB [Suspect]
     Indication: RHEUMATOID ARTHRITIS
     Dosage: 2.5 MG, BID, ORAL; 4 MG, ORAL
     Route: 048
     Dates: start: 19980918, end: 20060316
  3. PREDNISOLONE TAB [Suspect]
     Indication: RHEUMATOID ARTHRITIS
     Dosage: 2.5 MG, BID, ORAL; 4 MG, ORAL
     Route: 048
     Dates: start: 20060317
  4. COVERSYL /BEL/ (PERINDOPRIL ERBUMINE) TABLET [Concomitant]
  5. SUNRYTHM (PILSICAINIDE HYDROCHLORIDE) CAPSULE [Concomitant]
  6. WARFARIN SODIUM [Concomitant]
  7. URSO (URSODEOXYCHOLIC ACID) TABLET [Concomitant]
  8. GASTER D TABLET [Concomitant]
  9. AZULFIDINE EN TABLET [Concomitant]
  10. ORCL (ACTARIT) TABLET [Concomitant]
  11. MOBIC [Concomitant]
  12. BENET (RISEDRONATE SODIUM) TABLET [Concomitant]
  13. METALCAPTASE TABLET [Concomitant]
  14. GLAKAY (MENATETRENONE) PER ORAL NOS [Concomitant]

REACTIONS (1)
  - SIALOADENITIS [None]
